FAERS Safety Report 14932818 (Version 2)
Quarter: 2018Q4

REPORT INFORMATION
  Report Type: Spontaneous
  Country: IN (occurrence: IN)
  Receive Date: 20180524
  Receipt Date: 20181009
  Transmission Date: 20190204
  Serious: Yes (Death, Life-Threatening, Hospitalization, Other)
  Sender: FDA-Public Use
  Company Number: IN-MACLEODS PHARMACEUTICALS US LTD-MAC2018013623

PATIENT

DRUGS (8)
  1. ETHAMBUTOL TABLETS [Suspect]
     Active Substance: ETHAMBUTOL HYDROCHLORIDE
     Dosage: 800 MILLIGRAM, ON DAY 4
     Route: 048
  2. CETIRIZINE [Concomitant]
     Active Substance: CETIRIZINE HYDROCHLORIDE
     Indication: DRUG ERUPTION
     Dosage: 20 MILLIGRAM, 12 HOUR
     Route: 048
  3. LEVOFLOXACIN TABLET [Suspect]
     Active Substance: LEVOFLOXACIN
     Dosage: 100 MILLIGRAM, QD, ON DAY 1
     Route: 048
  4. ETHAMBUTOL TABLETS [Suspect]
     Active Substance: ETHAMBUTOL HYDROCHLORIDE
     Indication: TUBERCULOSIS
     Dosage: 100 MILLIGRAM, ON DAY 3
     Route: 048
  5. STREPTOMYCIN [Suspect]
     Active Substance: STREPTOMYCIN\STREPTOMYCIN SULFATE
     Dosage: 500 UNK, ON DAY 6
     Route: 065
  6. LEVOFLOXACIN TABLET [Suspect]
     Active Substance: LEVOFLOXACIN
     Indication: TUBERCULOSIS
     Dosage: 500 MILLIGRAM, QD, ON DAY 2
     Route: 048
  7. STREPTOMYCIN [Suspect]
     Active Substance: STREPTOMYCIN\STREPTOMYCIN SULFATE
     Indication: TUBERCULOSIS
     Dosage: 125 MILLIGRAM, ON DAY 5
     Route: 065
  8. AZITHROMYCIN ANHYDROUS. [Concomitant]
     Active Substance: AZITHROMYCIN ANHYDROUS
     Indication: DRUG ERUPTION
     Dosage: 500 MILLIGRAM, 24 HOUR
     Route: 048

REACTIONS (3)
  - Condition aggravated [Unknown]
  - Toxic epidermal necrolysis [Unknown]
  - Cardiac arrest [Fatal]
